FAERS Safety Report 10186224 (Version 1)
Quarter: 2014Q2

REPORT INFORMATION
  Report Type: Report from Study
  Country: BR (occurrence: BR)
  Receive Date: 20140521
  Receipt Date: 20140521
  Transmission Date: 20141212
  Serious: Yes (Other)
  Sender: FDA-Public Use
  Company Number: BR-BRISTOL-MYERS SQUIBB COMPANY-20782736

PATIENT
  Age: 59 Year
  Sex: Female
  Weight: 48 kg

DRUGS (1)
  1. ERBITUX SOLN FOR INF [Suspect]
     Indication: METASTASES TO LUNG
     Route: 042
     Dates: start: 201211, end: 20140507

REACTIONS (5)
  - Gastrointestinal disorder [Unknown]
  - Liver disorder [Unknown]
  - Skin reaction [Recovering/Resolving]
  - Feeling hot [Unknown]
  - Nausea [Unknown]
